FAERS Safety Report 10480032 (Version 1)
Quarter: 2014Q3

REPORT INFORMATION
  Report Type: Spontaneous
  Country: US (occurrence: None)
  Receive Date: 20140926
  Receipt Date: 20140926
  Transmission Date: 20150326
  Serious: No
  Sender: FDA-Public Use
  Company Number: None

PATIENT
  Age: 67 Year
  Sex: Female

DRUGS (1)
  1. FORTEO [Suspect]
     Active Substance: TERIPARATIDE
     Indication: PRODUCT USED FOR UNKNOWN INDICATION
     Route: 058
     Dates: start: 20140911

REACTIONS (7)
  - Arthralgia [None]
  - Decreased appetite [None]
  - Nausea [None]
  - Diarrhoea [None]
  - Headache [None]
  - Dyspepsia [None]
  - Weight decreased [None]

NARRATIVE: CASE EVENT DATE: 20140924
